FAERS Safety Report 4668651-7 (Version None)
Quarter: 2005Q2

REPORT INFORMATION
  Report Type: 
  Country: None (occurrence: None)
  Receive Date: 20050523
  Receipt Date: 20040428
  Transmission Date: 20051028
  Serious: Yes (Other)
  Sender: FDA-Public Use
  Company Number: US-GLAXOSMITHKLINE-A0508776A

PATIENT
  Sex: Female

DRUGS (1)
  1. FLOLAN [Suspect]
     Route: 042

REACTIONS (2)
  - PLATELET COUNT DECREASED [None]
  - SPLENOMEGALY [None]
